FAERS Safety Report 10195778 (Version 3)
Quarter: 2014Q3

REPORT INFORMATION
  Report Type: Spontaneous
  Country: US (occurrence: None)
  Receive Date: 20140522
  Receipt Date: 20140825
  Transmission Date: 20150326
  Serious: Yes (Hospitalization)
  Sender: FDA-Public Use
  Company Number: AUR-APL-2014-05915

PATIENT
  Age: 63 Year
  Sex: Male
  Weight: 115 kg

DRUGS (11)
  1. ASPIRIN. [Concomitant]
     Active Substance: ASPIRIN
  2. HYDROCHLOROTHIAZIDE. [Suspect]
     Active Substance: HYDROCHLOROTHIAZIDE
     Indication: HYPERTENSION
     Dosage: (12.5 MG, 1 D), ORAL
     Route: 048
     Dates: start: 1994, end: 20140516
  3. TRAZODONE [Concomitant]
     Active Substance: TRAZODONE HYDROCHLORIDE
  4. LISINOPRIL. [Suspect]
     Active Substance: LISINOPRIL
     Indication: HYPERTENSION
     Dosage: (30 MG, 1 D), ORAL
     Route: 048
     Dates: start: 1994, end: 20140507
  5. PROTONIX (PANTOPRAZOLE SODIUM SESQUIHYDRATE) [Concomitant]
  6. GLIMEPIRIDE (GLIMEPIRIDE) [Concomitant]
     Active Substance: GLIMEPIRIDE
  7. ATORVASTATIN (ATORVASTATIN) [Concomitant]
     Active Substance: ATORVASTATIN
  8. GABAPENTIN (GABAPENTIN) [Concomitant]
     Active Substance: GABAPENTIN
  9. PANTOPRAZOLE (PANTOPRAZOLE) [Concomitant]
     Active Substance: PANTOPRAZOLE SODIUM
  10. METFORMIN ER (METFORMIN HYDROCHLORIDE) [Concomitant]
  11. JANUVIA [Concomitant]
     Active Substance: SITAGLIPTIN PHOSPHATE

REACTIONS (4)
  - Renal injury [None]
  - Hyponatraemia [None]
  - Glycosylated haemoglobin increased [None]
  - Hyperkalaemia [None]

NARRATIVE: CASE EVENT DATE: 20140507
